FAERS Safety Report 7804468-X (Version None)
Quarter: 2011Q4

REPORT INFORMATION
  Report Type: 
  Country: None (occurrence: None)
  Receive Date: 20111010
  Receipt Date: 20110918
  Transmission Date: 20120403
  Serious: No
  Sender: FDA-Public Use
  Company Number: KR-ACTELION-A-CH2011-53255

PATIENT

DRUGS (1)
  1. ZAVESCA [Suspect]
     Indication: NIEMANN-PICK DISEASE
     Route: 048

REACTIONS (1)
  - NO ADVERSE EVENT [None]
